FAERS Safety Report 7534632-9 (Version None)
Quarter: 2011Q2

REPORT INFORMATION
  Report Type: 
  Country: None (occurrence: None)
  Receive Date: 20110609
  Receipt Date: 20110322
  Transmission Date: 20111010
  Serious: Yes (Death, Hospitalization, Other)
  Sender: FDA-Public Use
  Company Number: PHHY2011NO23057

PATIENT
  Sex: Female

DRUGS (3)
  1. GLUCOPHAGE [Suspect]
     Indication: TYPE 2 DIABETES MELLITUS
     Dosage: 1000 MG, QD
     Route: 048
  2. VALSARTAN  AND HYDROCHLOROTHIAZIDE [Suspect]
     Indication: CARDIAC FAILURE
     Dosage: 160 MG OF VALSARTAN AND 25 MG OF HYDROCHLOROTHIAZIDE, ONCE DAILY
     Route: 048
  3. BUMETANIDE [Suspect]
     Indication: CARDIAC FAILURE
     Dosage: 4 MG + 2 MG DAILY
     Route: 048

REACTIONS (10)
  - DEATH [None]
  - HYPOVOLAEMIC SHOCK [None]
  - HYPOTENSION [None]
  - LACTIC ACIDOSIS [None]
  - RENAL FAILURE [None]
  - MYOCARDIAL INFARCTION [None]
  - BLOOD CREATININE INCREASED [None]
  - DEHYDRATION [None]
  - VOMITING [None]
  - HYPOPHAGIA [None]
